FAERS Safety Report 14977926 (Version 1)
Quarter: 2018Q2

REPORT INFORMATION
  Report Type: Spontaneous
  Country: US (occurrence: US)
  Receive Date: 20180606
  Receipt Date: 20180606
  Transmission Date: 20180711
  Serious: No
  Sender: FDA-Public Use
  Company Number: US-PFIZER INC-2018224452

PATIENT
  Age: 77 Year
  Sex: Female
  Weight: 81.63 kg

DRUGS (1)
  1. XELJANZ XR [Suspect]
     Active Substance: TOFACITINIB CITRATE
     Indication: RHEUMATOID ARTHRITIS
     Dosage: 11 MG, 1X/DAY
     Route: 048
     Dates: start: 2018

REACTIONS (7)
  - Stomatitis [Not Recovered/Not Resolved]
  - Acne [Recovering/Resolving]
  - Folliculitis [Recovering/Resolving]
  - Respiratory disorder [Recovering/Resolving]
  - Malaise [Unknown]
  - Eye discharge [Unknown]
  - Laryngitis [Recovering/Resolving]

NARRATIVE: CASE EVENT DATE: 201805
